FAERS Safety Report 6739891-8 (Version None)
Quarter: 2010Q2

REPORT INFORMATION
  Report Type: 
  Country: None (occurrence: None)
  Receive Date: 20100525
  Receipt Date: 20100517
  Transmission Date: 20101027
  Serious: Yes (Other)
  Sender: FDA-Public Use
  Company Number: FR-PFIZER INC-2010061293

PATIENT
  Age: 56 Year
  Sex: Male

DRUGS (4)
  1. TAHOR [Suspect]
     Indication: CARDIOVASCULAR EVENT PROPHYLAXIS
     Dosage: UNK
     Route: 048
     Dates: start: 20080101, end: 20090910
  2. NORFLOXACIN [Suspect]
     Indication: URINARY TRACT INFECTION
     Dosage: UNK
     Route: 048
     Dates: start: 20090801, end: 20090910
  3. IRBESARTAN [Concomitant]
     Dosage: UNK
     Route: 048
     Dates: start: 20080101, end: 20090910
  4. KARDEGIC [Concomitant]
     Indication: CARDIOVASCULAR EVENT PROPHYLAXIS
     Dosage: UNK
     Route: 048
     Dates: start: 20080101, end: 20090910

REACTIONS (1)
  - TENDON DISORDER [None]
